FAERS Safety Report 5679380-5 (Version None)
Quarter: 2008Q1

REPORT INFORMATION
  Report Type: 
  Country: None (occurrence: None)
  Receive Date: 20080325
  Receipt Date: 20080314
  Transmission Date: 20080703
  Serious: Yes (Other)
  Sender: FDA-Public Use
  Company Number: SE-ELI_LILLY_AND_COMPANY-SE200801002456

PATIENT
  Sex: Male

DRUGS (3)
  1. STRATTERA [Suspect]
     Indication: ATTENTION DEFICIT/HYPERACTIVITY DISORDER
     Dosage: 60 MG, DAILY (1/D)
     Route: 048
     Dates: start: 20060901, end: 20070901
  2. ALCOHOL [Concomitant]
     Route: 048
  3. ALCOHOL [Concomitant]
     Dosage: 750 ML, UNK
     Route: 048
     Dates: start: 20070903

REACTIONS (2)
  - ANGER [None]
  - SUICIDE ATTEMPT [None]
